FAERS Safety Report 4619853-7 (Version None)
Quarter: 2005Q1

REPORT INFORMATION
  Report Type: 
  Country: None (occurrence: None)
  Receive Date: 20050328
  Receipt Date: 20050315
  Transmission Date: 20050727
  Serious: Yes (Hospitalization)
  Sender: FDA-Public Use
  Company Number: US-JNJFOC-20050304792

PATIENT
  Sex: Female

DRUGS (5)
  1. INFLIXIMAB [Suspect]
     Dosage: 6 INFUSIONS
     Route: 042
  2. INFLIXIMAB [Suspect]
     Indication: POUCHITIS
     Dosage: 3 INFUSIONS
     Route: 042
  3. STEROID [Concomitant]
  4. IMURAN [Concomitant]
  5. FLAGYL [Concomitant]

REACTIONS (8)
  - ABDOMINAL PAIN [None]
  - ANAL FISSURE [None]
  - BACK PAIN [None]
  - DIARRHOEA [None]
  - ERYTHEMA NODOSUM [None]
  - INFUSION RELATED REACTION [None]
  - PERIANAL ABSCESS [None]
  - VOMITING [None]
